FAERS Safety Report 16034179 (Version 2)
Quarter: 2023Q4

REPORT INFORMATION
  Report Type: Spontaneous
  Country: IT (occurrence: IT)
  Receive Date: 20190305
  Receipt Date: 20231218
  Transmission Date: 20240109
  Serious: Yes (Death, Other)
  Sender: FDA-Public Use
  Company Number: None

PATIENT

DRUGS (13)
  1. ETOPOSIDE [Suspect]
     Active Substance: ETOPOSIDE
     Indication: Surgical preconditioning
     Dosage: 200 MG/M2, UNK, ON DAYS  - 5 TO  - 2  CYCLIC
     Route: 065
  2. CYTARABINE [Suspect]
     Active Substance: CYTARABINE
     Indication: Surgical preconditioning
     Dosage: 1 DF-100 MG/ML
     Route: 065
  3. MELPHALAN [Suspect]
     Active Substance: MELPHALAN
     Indication: Surgical preconditioning
     Dosage: 140 MG/M2, QD, ON DAY - 1 , CYCLICAL
     Route: 065
  4. RITUXIMAB [Suspect]
     Active Substance: RITUXIMAB
     Indication: Follicular lymphoma
     Dosage: 250 MG/KG, UNK (ON DAY 14)
     Route: 065
  5. ZEVALIN [Suspect]
     Active Substance: IBRITUMOMAB TIUXETAN
     Indication: Product used for unknown indication
     Dosage: WITH A MAXIMUM TOTAL DOSE OF 32 MCI
     Route: 065
  6. CARMUSTINE [Suspect]
     Active Substance: CARMUSTINE
     Indication: Surgical preconditioning
     Dosage: 300 MG/M2, UNK, ON DAYS  6 CYCLIC
     Route: 065
  7. GRANULOCYTE COLONY STIMULATING FACT [Concomitant]
     Indication: Product used for unknown indication
     Dosage: 5 UG/KG, QD, ON DAY 1
     Route: 065
  8. CYTARABINE [Suspect]
     Active Substance: CYTARABINE
     Indication: Non-Hodgkin^s lymphoma refractory
     Dosage: ON DAY 5 TO DAY 2
     Route: 065
  9. CYTARABINE [Suspect]
     Active Substance: CYTARABINE
     Indication: Surgical preconditioning
     Dosage: 200 MG/M2, UNK, TWICE A DAY ON DAYS - 5 TO - 2 , CYCLIC
     Route: 065
  10. CARMUSTINE [Suspect]
     Active Substance: CARMUSTINE
     Indication: Non-Hodgkin^s lymphoma refractory
     Dosage: ON DAY 6
     Route: 065
  11. ZEVALIN [Suspect]
     Active Substance: IBRITUMOMAB TIUXETAN
     Indication: Surgical preconditioning
     Dosage: WITH A MAXIMUM TOTAL DOSE OF 0.4 MCI/KG
     Route: 065
  12. ETOPOSIDE [Suspect]
     Active Substance: ETOPOSIDE
     Indication: Non-Hodgkin^s lymphoma refractory
     Dosage: ON DAY 5 TO DAY 2
     Route: 065
  13. MELPHALAN [Suspect]
     Active Substance: MELPHALAN
     Indication: Non-Hodgkin^s lymphoma refractory
     Dosage: ON DAY 1
     Route: 065

REACTIONS (5)
  - Off label use [Unknown]
  - Progressive multifocal leukoencephalopathy [Fatal]
  - Myelodysplastic syndrome with excess blasts [Unknown]
  - JC virus infection [Fatal]
  - Follicular lymphoma [Unknown]
